FAERS Safety Report 9387440 (Version 1)
Quarter: 2013Q3

REPORT INFORMATION
  Report Type: Spontaneous
  Country: GB (occurrence: GB)
  Receive Date: 20130708
  Receipt Date: 20130708
  Transmission Date: 20140515
  Serious: Yes (Other)
  Sender: FDA-Public Use
  Company Number: GB-ASTRAZENECA-2013SE48615

PATIENT
  Age: 51 Year
  Sex: Female

DRUGS (7)
  1. LIDOCAINE [Suspect]
     Route: 023
     Dates: start: 20130521, end: 20130521
  2. RESTYLANE [Suspect]
     Route: 065
     Dates: start: 20130521, end: 20130521
  3. FOSTAIR [Concomitant]
     Route: 055
  4. PREMPAK-C [Concomitant]
     Route: 048
  5. OMEPRAZOLE [Concomitant]
     Route: 048
  6. RAMIPRIL [Concomitant]
     Route: 048
  7. VENTOLIN [Concomitant]
     Route: 055

REACTIONS (2)
  - Lip swelling [Recovered/Resolved]
  - Hypersensitivity [Recovered/Resolved]
